FAERS Safety Report 10586504 (Version 1)
Quarter: 2014Q4

REPORT INFORMATION
  Report Type: Spontaneous
  Country: US (occurrence: None)
  Receive Date: 20141114
  Receipt Date: 20141114
  Transmission Date: 20150529
  Serious: Yes (Life-Threatening, Disabling, Other)
  Sender: FDA-Public Use
  Company Number: None

PATIENT
  Age: 60 Year
  Sex: Female
  Weight: 97.98 kg

DRUGS (1)
  1. LEVETIRACETAM. [Suspect]
     Active Substance: LEVETIRACETAM
     Indication: EPILEPSY
     Dosage: 1 IN AM AND TAKE 2 IN PM??ABOUT 1 + 1/2 YEARS
     Route: 048

REACTIONS (14)
  - Neuralgia [None]
  - Fatigue [None]
  - Myalgia [None]
  - Weight increased [None]
  - Hypotension [None]
  - Cold sweat [None]
  - Suicidal ideation [None]
  - Asthenia [None]
  - Blood glucose decreased [None]
  - Palpitations [None]
  - Syncope [None]
  - Disorientation [None]
  - Anxiety [None]
  - Paraesthesia [None]
